FAERS Safety Report 5505648-9 (Version None)
Quarter: 2007Q4

REPORT INFORMATION
  Report Type: 
  Country: None (occurrence: None)
  Receive Date: 20071102
  Receipt Date: 20071022
  Transmission Date: 20080405
  Serious: Yes (Other)
  Sender: FDA-Public Use
  Company Number: US-PFIZER INC-2007074972

PATIENT
  Sex: Female
  Weight: 55.909 kg

DRUGS (5)
  1. CHANTIX [Suspect]
     Indication: SMOKING CESSATION THERAPY
  2. LISINOPRIL [Concomitant]
  3. POTASSIUM CHLORIDE [Concomitant]
  4. VITAMINS [Concomitant]
  5. ADVIL [Concomitant]

REACTIONS (3)
  - ANXIETY [None]
  - GAIT DISTURBANCE [None]
  - JOB DISSATISFACTION [None]
